FAERS Safety Report 16564451 (Version 2)
Quarter: 2019Q3

REPORT INFORMATION
  Report Type: Spontaneous
  Country: US (occurrence: US)
  Receive Date: 20190712
  Receipt Date: 20190812
  Transmission Date: 20191004
  Serious: No
  Sender: FDA-Public Use
  Company Number: US-009507513-1906USA005912

PATIENT
  Age: 21 Year
  Sex: Female
  Weight: 78.46 kg

DRUGS (2)
  1. NEXPLANON [Suspect]
     Active Substance: ETONOGESTREL
     Dosage: ONE ROD, EVERY 3 YEARS / LEFT ARM
     Route: 059
     Dates: start: 20160518, end: 20190611
  2. NEXPLANON [Suspect]
     Active Substance: ETONOGESTREL
     Dosage: ONE ROD, EVERY 3 YEARS
     Route: 059
     Dates: start: 20190611

REACTIONS (6)
  - Device kink [Recovered/Resolved]
  - Complication associated with device [Recovered/Resolved]
  - No adverse event [Unknown]
  - Device breakage [Recovered/Resolved]
  - Device deployment issue [Recovered/Resolved]
  - Incorrect product administration duration [Unknown]

NARRATIVE: CASE EVENT DATE: 20160818
